FAERS Safety Report 16611304 (Version 2)
Quarter: 2020Q2

REPORT INFORMATION
  Report Type: Spontaneous
  Country: US (occurrence: US)
  Receive Date: 20190722
  Receipt Date: 20200402
  Transmission Date: 20200713
  Serious: No
  Sender: FDA-Public Use
  Company Number: US-SA-2019SA197329

PATIENT
  Age: 49 Year
  Sex: Female
  Weight: 72 kg

DRUGS (20)
  1. DUPIXENT [Suspect]
     Active Substance: DUPILUMAB
     Indication: ASTHMA
     Dosage: 300 MG, QOW
     Route: 058
     Dates: start: 20190301
  2. CALCIUM CARBONATE. [Concomitant]
     Active Substance: CALCIUM CARBONATE
  3. FISH OIL [Concomitant]
     Active Substance: FISH OIL
  4. CALCIUM [Concomitant]
     Active Substance: CALCIUM
  5. SYMBICORT [Concomitant]
     Active Substance: BUDESONIDE\FORMOTEROL FUMARATE DIHYDRATE
  6. VITAMIN C [Concomitant]
     Active Substance: ASCORBIC ACID
  7. MONTELUKAST SODIUM. [Concomitant]
     Active Substance: MONTELUKAST SODIUM
  8. ACETAMINOPHEN AND CODEINE [Concomitant]
     Active Substance: ACETAMINOPHEN\CODEINE PHOSPHATE
  9. BIOTIN [Concomitant]
     Active Substance: BIOTIN
  10. COVARYX [Concomitant]
     Active Substance: ESTROGENS, ESTERIFIED\METHYLTESTOSTERONE
  11. DICYCLOMINE [DICYCLOVERINE HYDROCHLORIDE] [Concomitant]
  12. ARMOUR THYROID [Concomitant]
     Active Substance: THYROID, PORCINE
  13. GLUCOSAMINE SULFATE [Concomitant]
     Active Substance: GLUCOSAMINE SULFATE
  14. FLONASE ALLERGY RELIEF [Concomitant]
     Active Substance: FLUTICASONE PROPIONATE
  15. CEFDINIR. [Concomitant]
     Active Substance: CEFDINIR
  16. OMEPRAZOLE. [Concomitant]
     Active Substance: OMEPRAZOLE
  17. FLORASTOR [LACTOBACILLUS ACIDOPHILUS] [Concomitant]
  18. ZOLOFT [Concomitant]
     Active Substance: SERTRALINE HYDROCHLORIDE
  19. ESTROGEN/METHYLTES [Concomitant]
     Active Substance: ESTROGENS\METHYLTESTOSTERONE
  20. ADVAIR UNSPEC [Concomitant]

REACTIONS (5)
  - Pain [Unknown]
  - Asthma [Unknown]
  - Product dose omission [Unknown]
  - Product use issue [Unknown]
  - Malaise [Unknown]

NARRATIVE: CASE EVENT DATE: 20200302
